FAERS Safety Report 6440125-2 (Version None)
Quarter: 2009Q4

REPORT INFORMATION
  Report Type: 
  Country: None (occurrence: None)
  Receive Date: 20091113
  Receipt Date: 20090107
  Transmission Date: 20100525
  Serious: No
  Sender: FDA-Public Use
  Company Number: A0763052A

PATIENT
  Age: 66 Year
  Sex: Male
  Weight: 95.5 kg

DRUGS (3)
  1. CARVEDILOL [Suspect]
     Indication: HYPERTENSION
     Route: 048
     Dates: start: 20080601
  2. SIMCOR [Suspect]
     Indication: BLOOD CHOLESTEROL INCREASED
     Dosage: 100MG PER DAY
     Route: 048
     Dates: start: 20080612
  3. ALISKIREN [Concomitant]

REACTIONS (4)
  - FLUSHING [None]
  - MUSCLE SPASMS [None]
  - PAIN [None]
  - PRURITUS [None]
